FAERS Safety Report 5683947-8 (Version None)
Quarter: 2008Q1

REPORT INFORMATION
  Report Type: 
  Country: None (occurrence: None)
  Receive Date: 20080328
  Receipt Date: 20080318
  Transmission Date: 20080703
  Serious: No
  Sender: FDA-Public Use
  Company Number: PHEH2008US02458

PATIENT
  Sex: Female

DRUGS (1)
  1. GLEEVEC [Suspect]
     Indication: CHRONIC MYELOID LEUKAEMIA
     Dosage: 400 MG, QD
     Route: 048
     Dates: start: 20060101

REACTIONS (2)
  - CONJUNCTIVAL HAEMORRHAGE [None]
  - EYE IRRITATION [None]
